FAERS Safety Report 6432307-0 (Version None)
Quarter: 2009Q4

REPORT INFORMATION
  Report Type: 
  Country: None (occurrence: None)
  Receive Date: 20091105
  Receipt Date: 20091027
  Transmission Date: 20100525
  Serious: Yes (Hospitalization, Other)
  Sender: FDA-Public Use
  Company Number: CLOF-1000749

PATIENT
  Age: 22 Year
  Sex: Male
  Weight: 76.8 kg

DRUGS (29)
  1. CLOLAR [Suspect]
     Indication: ACUTE MYELOID LEUKAEMIA
     Dosage: 21 MG, QD, INTRAVENOUS, 299 MG, INTRAVENOUS
     Route: 042
     Dates: start: 20090723, end: 20090726
  2. FLUDARABINE PHOSPHATE [Suspect]
     Indication: ACUTE MYELOID LEUKAEMIA
     Dosage: 62 MG, QD, INTRAVENOUS
     Route: 042
     Dates: start: 20090723, end: 20090726
  3. BUSULFAN (BUSULFAN) [Suspect]
     Indication: ACUTE MYELOID LEUKAEMIA
     Dosage: 299 MG, QD, INTRAVENOUS, 373 MG, QD, INTRAVENOUS
     Route: 042
     Dates: start: 20090723, end: 20090724
  4. BUSULFAN (BUSULFAN) [Suspect]
     Indication: ACUTE MYELOID LEUKAEMIA
     Dosage: 299 MG, QD, INTRAVENOUS, 373 MG, QD, INTRAVENOUS
     Route: 042
     Dates: start: 20090725, end: 20090726
  5. ACYCLOVIR [Concomitant]
  6. ANIDULAFUNGIN (ANIDULAFUNGIN) [Concomitant]
  7. AZTREONAM (AZTREONAM) [Concomitant]
  8. CADEXOMER IODINE (CADEXOMER IODINE) [Concomitant]
  9. CYCLOSPORINE [Concomitant]
  10. DAPTOMYCIN (DAPTOMYCIN) [Concomitant]
  11. ERYTHROMYCIN [Concomitant]
  12. GATIFLOXACIN [Concomitant]
  13. HEPARIN [Concomitant]
  14. HEXACHLOROPHENE (HEXACHLOROPHENE) [Concomitant]
  15. HYDROCORTISONE SODIUM SUCCINATE (HYDROCORTISOINE SODIUM SUCCINATE) [Concomitant]
  16. HYDROMORPHONE HCL [Concomitant]
  17. INSULIN DETEMIR (INSULIN DETEMIR) [Concomitant]
  18. INSULIN HUMAN (INSULIN HUMAN) [Concomitant]
  19. LEVALBUTEROL HYDROCHLORIDE (LEVOSALBUTAMOL HYDROCHLORIDE) [Concomitant]
  20. LIDOCAINE (LIDOCAINEI HYDROCHLORIDE) [Concomitant]
  21. METHYLPREDNISOLONE [Concomitant]
  22. MUPIROCIN [Concomitant]
  23. PANTOPRAZOLE SODIUM [Concomitant]
  24. PHYTONADIONE [Concomitant]
  25. POLYVINYL ALCOHOL (POLYVINYL ALCOHOL) [Concomitant]
  26. PROBENECID [Concomitant]
  27. SODIUM CHLORIDE 0.9% [Concomitant]
  28. TIGECYCLINE (TIGECYCLINE) [Concomitant]
  29. URSODIOL [Concomitant]

REACTIONS (6)
  - ACUTE GRAFT VERSUS HOST DISEASE [None]
  - ACUTE RESPIRATORY FAILURE [None]
  - DIALYSIS [None]
  - HERPES SIMPLEX OPHTHALMIC [None]
  - RENAL FAILURE ACUTE [None]
  - RESPIRATORY DISTRESS [None]
